FAERS Safety Report 15566023 (Version 1)
Quarter: 2018Q4

REPORT INFORMATION
  Report Type: Spontaneous
  Country: US (occurrence: US)
  Receive Date: 20181025
  Receipt Date: 20181025
  Transmission Date: 20190205
  Serious: No
  Sender: FDA-Public Use
  Company Number: None

PATIENT
  Age: 27 Year
  Sex: Female
  Weight: 94.35 kg

DRUGS (1)
  1. STELARA [Suspect]
     Active Substance: USTEKINUMAB
     Indication: PSORIATIC ARTHROPATHY
     Dosage: INJECT 90MG SUBCUTANEOUSLY   ON DAY 0 AND DAY 28 AS DIRECTED
     Route: 058
     Dates: start: 201808

REACTIONS (3)
  - Joint swelling [None]
  - Gait inability [None]
  - Pain [None]
